FAERS Safety Report 20659044 (Version 1)
Quarter: 2022Q1

REPORT INFORMATION
  Report Type: Spontaneous
  Country: PT (occurrence: PT)
  Receive Date: 20220331
  Receipt Date: 20220331
  Transmission Date: 20220424
  Serious: Yes (Other)
  Sender: FDA-Public Use
  Company Number: PT-009507513-2003PRT007115

PATIENT
  Sex: Male

DRUGS (1)
  1. ZERBAXA [Suspect]
     Active Substance: CEFTOLOZANE SULFATE\TAZOBACTAM SODIUM
     Indication: Abdominal infection
     Dosage: 3 GRAM, Q8H

REACTIONS (3)
  - Pathogen resistance [Unknown]
  - Incorrect dose administered [Unknown]
  - Product use issue [Unknown]
